FAERS Safety Report 6140476-5 (Version None)
Quarter: 2009Q2

REPORT INFORMATION
  Report Type: 
  Country: None (occurrence: None)
  Receive Date: 20090401
  Receipt Date: 20090320
  Transmission Date: 20091009
  Serious: Yes (Death, Other)
  Sender: FDA-Public Use
  Company Number: US-PFIZER INC-2008151178

PATIENT
  Sex: Male

DRUGS (5)
  1. CHANTIX [Suspect]
     Indication: SMOKING CESSATION THERAPY
     Dosage: 1 MG, 2X/DAY
     Route: 048
     Dates: start: 20081201
  2. METHADONE [Suspect]
     Indication: BACK PAIN
     Dosage: 10 MG, 3X/DAY
     Dates: start: 20060525
  3. WARFARIN [Concomitant]
     Dosage: 2.5 MG, 1X/DAY
  4. DILANTIN [Concomitant]
     Indication: CONVULSION
     Dosage: 500 MG, 1X/DAY
  5. LISINOPRIL [Concomitant]
     Dosage: 5 MG, 1X/DAY

REACTIONS (3)
  - CARDIAC FAILURE [None]
  - MICTURITION URGENCY [None]
  - MIDDLE INSOMNIA [None]
